FAERS Safety Report 13612366 (Version 1)
Quarter: 2017Q2

REPORT INFORMATION
  Report Type: Spontaneous
  Country: IE (occurrence: IE)
  Receive Date: 20170605
  Receipt Date: 20170605
  Transmission Date: 20170830
  Serious: Yes (Hospitalization, Other)
  Sender: FDA-Public Use
  Company Number: IE-NOVOPROD-547476

PATIENT
  Age: 47 Year
  Sex: Female

DRUGS (1)
  1. ESTROFEM [Suspect]
     Active Substance: ESTRADIOL CYPIONATE
     Indication: IN VITRO FERTILISATION
     Dosage: UNK
     Route: 065

REACTIONS (5)
  - Presyncope [Recovered/Resolved]
  - Deep vein thrombosis [Recovered/Resolved]
  - Exposure during pregnancy [Unknown]
  - Pulmonary embolism [Recovered/Resolved]
  - Off label use [Unknown]

NARRATIVE: CASE EVENT DATE: 20170303
